FAERS Safety Report 4866344-4 (Version None)
Quarter: 2005Q4

REPORT INFORMATION
  Report Type: 
  Country: None (occurrence: None)
  Receive Date: 20051221
  Receipt Date: 20051208
  Transmission Date: 20060501
  Serious: Yes (Other)
  Sender: FDA-Public Use
  Company Number: 2005165618

PATIENT
  Sex: Male

DRUGS (1)
  1. VIAGRA [Suspect]
     Indication: ILL-DEFINED DISORDER

REACTIONS (5)
  - CIRCUMCISED [None]
  - DEPRESSION [None]
  - DRUG INEFFECTIVE [None]
  - HYPERTENSION [None]
  - POST PROCEDURAL COMPLICATION [None]
